FAERS Safety Report 8475676-2 (Version None)
Quarter: 2012Q2

REPORT INFORMATION
  Report Type: 
  Country: None (occurrence: None)
  Receive Date: 20120628
  Receipt Date: 20120620
  Transmission Date: 20120825
  Serious: Yes (Hospitalization)
  Sender: FDA-Public Use
  Company Number: US-GLAXOSMITHKLINE-A0875635A

PATIENT
  Age: 59 Year
  Sex: Male
  Weight: 126.8 kg

DRUGS (7)
  1. AVAPRO [Concomitant]
  2. AVANDIA [Suspect]
     Indication: DIABETES MELLITUS
     Dosage: 4MG PER DAY
     Route: 048
     Dates: start: 19990101, end: 20071001
  3. LOPRESSOR [Concomitant]
  4. CORDARONE [Concomitant]
  5. INSULIN [Concomitant]
  6. MONOPRIL [Concomitant]
  7. PREVACID [Concomitant]

REACTIONS (6)
  - CEREBROVASCULAR ACCIDENT [None]
  - MYOCARDIAL INFARCTION [None]
  - CARDIAC FAILURE CONGESTIVE [None]
  - HIP FRACTURE [None]
  - CORONARY ARTERY DISEASE [None]
  - LACUNAR INFARCTION [None]
